FAERS Safety Report 9585516 (Version 1)
Quarter: 2013Q4

REPORT INFORMATION
  Report Type: Spontaneous
  Country: US (occurrence: US)
  Receive Date: 20131003
  Receipt Date: 20131003
  Transmission Date: 20140711
  Serious: Yes (Death, Hospitalization)
  Sender: FDA-Public Use
  Company Number: 2013SP006896

PATIENT
  Age: 11 Month
  Sex: Male

DRUGS (14)
  1. MIDAZOLAM [Suspect]
     Indication: STATUS EPILEPTICUS
  2. FOSPHENYTOIN SODIUM [Suspect]
     Indication: STATUS EPILEPTICUS
  3. LEVETIRACETAM [Suspect]
     Indication: STATUS EPILEPTICUS
  4. LEVETIRACETAM [Suspect]
     Indication: STATUS EPILEPTICUS
  5. LORAZEPAM [Suspect]
     Indication: STATUS EPILEPTICUS
  6. PHENOBARBITAL [Suspect]
     Indication: STATUS EPILEPTICUS
  7. PHENOBARBITAL [Suspect]
     Indication: STATUS EPILEPTICUS
  8. PHENOBARBITAL [Suspect]
     Indication: STATUS EPILEPTICUS
  9. PHENOBARBITAL [Suspect]
     Indication: STATUS EPILEPTICUS
  10. PENTOBARBITAL [Suspect]
     Indication: STATUS EPILEPTICUS
  11. PYRIDOXINE [Suspect]
     Indication: PRODUCT USED FOR UNKNOWN INDICATION
  12. TOPIRAMATE [Concomitant]
  13. DOPAMINE [Concomitant]
  14. EPINEPHRINE [Concomitant]

REACTIONS (1)
  - Drug ineffective [Fatal]
